FAERS Safety Report 26109113 (Version 1)
Quarter: 2025Q4

REPORT INFORMATION
  Report Type: Spontaneous
  Country: JP (occurrence: None)
  Receive Date: 20251201
  Receipt Date: 20251201
  Transmission Date: 20260117
  Serious: Yes (Other)
  Sender: UCB
  Company Number: JP-UCBSA-2025073466

PATIENT
  Age: 7 Decade

DRUGS (3)
  1. LEVETIRACETAM [Suspect]
     Active Substance: LEVETIRACETAM
     Indication: Epilepsy
     Dosage: 500 MILLIGRAM PER DAY
  2. DONEPEZIL [Concomitant]
     Active Substance: DONEPEZIL
     Indication: Posterior cortical atrophy
     Dosage: 10 MILLIGRAM PER DAY
  3. MEMANTINE [Concomitant]
     Active Substance: MEMANTINE
     Indication: Posterior cortical atrophy
     Dosage: 20 MILLIGRAM PER DAY

REACTIONS (4)
  - Pneumonia aspiration [Unknown]
  - Drooling [Unknown]
  - Somnolence [Unknown]
  - Drug ineffective [Unknown]
